FAERS Safety Report 7581400-8 (Version None)
Quarter: 2011Q2

REPORT INFORMATION
  Report Type: 
  Country: None (occurrence: None)
  Receive Date: 20110629
  Receipt Date: 20110615
  Transmission Date: 20111010
  Serious: Yes (Other)
  Sender: FDA-Public Use
  Company Number: PHHY2010US47131

PATIENT
  Sex: Female

DRUGS (6)
  1. CALCIUM CARBONATE [Concomitant]
     Dosage: UNK
  2. FENOFIBRIC ACID [Suspect]
     Dosage: 2.5 MG, QOD
  3. FENOFIBRIC ACID [Suspect]
     Dosage: 2.5 MG, DAILY
     Dates: start: 20100301
  4. ZOMETA [Suspect]
     Dosage: UNK
     Dates: start: 20091101
  5. VITAMIN D [Concomitant]
     Dosage: UNK
  6. OMEGA [Concomitant]
     Dosage: UNK

REACTIONS (11)
  - DEPRESSION [None]
  - HOT FLUSH [None]
  - CONSTIPATION [None]
  - BONE PAIN [None]
  - HYPERHIDROSIS [None]
  - FATIGUE [None]
  - DIARRHOEA [None]
  - PYREXIA [None]
  - DEPRESSED LEVEL OF CONSCIOUSNESS [None]
  - MOOD SWINGS [None]
  - RIB FRACTURE [None]
